FAERS Safety Report 18039104 (Version 5)
Quarter: 2021Q4

REPORT INFORMATION
  Report Type: Report from Study
  Country: CO (occurrence: CO)
  Receive Date: 20200717
  Receipt Date: 20211130
  Transmission Date: 20220303
  Serious: Yes (Hospitalization, Other)
  Sender: FDA-Public Use
  Company Number: CO-ASTELLAS-2019US012475

PATIENT
  Age: 59 Year
  Sex: Male
  Weight: 58 kg

DRUGS (16)
  1. TACROLIMUS [Suspect]
     Active Substance: TACROLIMUS
     Indication: Renal transplant
     Dosage: 6 MG (2 CAPSULES OF 3 MG), ONCE DAILY
     Route: 048
     Dates: start: 20181113
  2. TACROLIMUS [Suspect]
     Active Substance: TACROLIMUS
     Indication: Heart transplant
     Dosage: 3 MG, ONCE DAILY (EVERY 24 HOURS)
     Route: 048
  3. TACROLIMUS [Suspect]
     Active Substance: TACROLIMUS
     Route: 048
     Dates: end: 202109
  4. TACROLIMUS [Suspect]
     Active Substance: TACROLIMUS
     Dosage: 0.5 MG, ONCE DAILY
     Route: 048
     Dates: start: 202109
  5. MYCOPHENOLATE MOFETIL [Suspect]
     Active Substance: MYCOPHENOLATE MOFETIL
     Indication: Immunosuppression
     Route: 048
     Dates: start: 20181113
  6. MYCOPHENOLATE MOFETIL [Suspect]
     Active Substance: MYCOPHENOLATE MOFETIL
     Dosage: UNK, UNKNOWN FREQ.
     Route: 048
  7. PREDNISOLONE [Concomitant]
     Active Substance: PREDNISOLONE
     Indication: Product used for unknown indication
     Route: 048
     Dates: start: 20181113
  8. CALCITRIOL [Concomitant]
     Active Substance: CALCITRIOL
     Indication: Calcium deficiency
     Dosage: 0.25 MG, ONCE DAILY
     Route: 048
     Dates: start: 20181113
  9. ASPIRIN [Concomitant]
     Active Substance: ASPIRIN
     Indication: Thrombosis
     Route: 048
     Dates: start: 20181113
  10. TRIMETHOPRIM [Concomitant]
     Active Substance: TRIMETHOPRIM
     Indication: Product used for unknown indication
     Route: 048
     Dates: start: 20181113
  11. ALENDRONATE SODIUM [Concomitant]
     Active Substance: ALENDRONATE SODIUM
     Indication: Bone disorder
     Dosage: UNK UNK, UNKNOWN FREQ.
     Route: 048
     Dates: start: 20181113
  12. PRAVASTATIN [Concomitant]
     Active Substance: PRAVASTATIN
     Indication: Product used for unknown indication
     Route: 048
     Dates: start: 20181113
  13. AMLODIPINE [Concomitant]
     Active Substance: AMLODIPINE BESYLATE
     Indication: Blood pressure abnormal
     Route: 048
     Dates: start: 20181113
  14. MAGNESIUM SULFATE [Concomitant]
     Active Substance: MAGNESIUM SULFATE
     Indication: Blood potassium increased
     Route: 048
     Dates: start: 20181113
  15. ACETAMINOPHEN [Concomitant]
     Active Substance: ACETAMINOPHEN
     Indication: Headache
     Dosage: 1000 MG, EVERY 12 HOURS (500 MG CAPSULES EVERY 12 HOURS)
     Route: 048
     Dates: start: 20181113
  16. PANTOPRAZOLE [Concomitant]
     Active Substance: PANTOPRAZOLE
     Indication: Product used for unknown indication
     Dosage: 40 MG, UNKNOWN FREQ. (FASTING DAILY)
     Route: 065

REACTIONS (6)
  - Secondary immunodeficiency [Recovered/Resolved]
  - Infective glossitis [Recovered/Resolved]
  - Tongue ulceration [Recovered/Resolved]
  - Immunosuppressant drug level increased [Recovering/Resolving]
  - Gastrooesophageal reflux disease [Recovering/Resolving]
  - Weight decreased [Recovered/Resolved]

NARRATIVE: CASE EVENT DATE: 20190101
